FAERS Safety Report 7419737-5 (Version None)
Quarter: 2011Q2

REPORT INFORMATION
  Report Type: 
  Country: None (occurrence: None)
  Receive Date: 20110413
  Receipt Date: 20110413
  Transmission Date: 20111010
  Serious: Yes (Disabling)
  Sender: FDA-Public Use
  Company Number: None

PATIENT
  Age: 61 Year
  Sex: Female
  Weight: 72.5755 kg

DRUGS (6)
  1. ZOCOR [Concomitant]
  2. METHOTREXATE [Concomitant]
  3. MYOCHRISINE [Concomitant]
  4. ACTEMRA [Suspect]
     Indication: RHEUMATOID ARTHRITIS
     Dosage: 290 MG Q4 WKS IV 578 MG Q4 WKS IV
     Route: 042
     Dates: start: 20100812
  5. ACTEMRA [Suspect]
     Indication: RHEUMATOID ARTHRITIS
     Dosage: 290 MG Q4 WKS IV 578 MG Q4 WKS IV
     Route: 042
     Dates: start: 20101103
  6. TOPROL-XL [Concomitant]

REACTIONS (4)
  - PARTIAL SEIZURES [None]
  - TRANSIENT ISCHAEMIC ATTACK [None]
  - MEMORY IMPAIRMENT [None]
  - INFUSION RELATED REACTION [None]
